FAERS Safety Report 19116901 (Version 2)
Quarter: 2021Q2

REPORT INFORMATION
  Report Type: Spontaneous
  Country: US (occurrence: US)
  Receive Date: 20210409
  Receipt Date: 20210630
  Transmission Date: 20210717
  Serious: Yes (Hospitalization)
  Sender: FDA-Public Use
  Company Number: US-ASTRAZENECA-2021A279733

PATIENT
  Age: 750 Month
  Sex: Male
  Weight: 79.4 kg

DRUGS (20)
  1. BRILINTA [Suspect]
     Active Substance: TICAGRELOR
     Indication: CORONARY ARTERIAL STENT INSERTION
     Dosage: 2 A DAY FOR THE FIRST DAY
     Route: 048
     Dates: start: 2014
  2. PLAVIX [Concomitant]
     Active Substance: CLOPIDOGREL BISULFATE
     Route: 065
     Dates: start: 20190711
  3. FLONASE [Concomitant]
     Active Substance: FLUTICASONE PROPIONATE
     Dosage: 50MG/ACT
     Route: 055
  4. CRESTOR [Suspect]
     Active Substance: ROSUVASTATIN CALCIUM
     Route: 048
  5. PRAVACHOL [Concomitant]
     Active Substance: PRAVASTATIN SODIUM
     Route: 065
     Dates: start: 20180323, end: 20180328
  6. ZOFRAN [Concomitant]
     Active Substance: ONDANSETRON HYDROCHLORIDE
     Route: 042
  7. ATENOLOL. [Suspect]
     Active Substance: ATENOLOL
     Route: 048
  8. BRILINTA [Suspect]
     Active Substance: TICAGRELOR
     Indication: MYOCARDIAL INFARCTION
     Route: 048
     Dates: start: 20180309, end: 20180420
  9. CLARITIN [Suspect]
     Active Substance: LORATADINE
     Route: 048
     Dates: start: 20180322
  10. EFFIENT [Suspect]
     Active Substance: PRASUGREL HYDROCHLORIDE
     Route: 065
  11. ZOLOFT [Concomitant]
     Active Substance: SERTRALINE HYDROCHLORIDE
     Route: 048
  12. TYLENOL [Concomitant]
     Active Substance: ACETAMINOPHEN
     Dosage: 1.0DF AS REQUIRED
     Route: 048
  13. COZAAR [Concomitant]
     Active Substance: LOSARTAN POTASSIUM
     Route: 065
  14. NITROSTAT [Concomitant]
     Active Substance: NITROGLYCERIN
     Indication: CHEST PAIN
     Dosage: 1 TABLET UNDER TONGUE EVENRY 5 MINUTES AS NEEDED, MAX 3 TOTAL DOSES
     Route: 065
  15. ASPIRIN. [Concomitant]
     Active Substance: ASPIRIN
     Route: 065
  16. BRILINTA [Suspect]
     Active Substance: TICAGRELOR
     Indication: MYOCARDIAL INFARCTION
     Dosage: 2 A DAY FOR THE FIRST DAY
     Route: 048
     Dates: start: 2014
  17. BRILINTA [Suspect]
     Active Substance: TICAGRELOR
     Indication: MYOCARDIAL INFARCTION
     Dosage: 1 A DAY
     Route: 048
  18. BRILINTA [Suspect]
     Active Substance: TICAGRELOR
     Indication: CORONARY ARTERIAL STENT INSERTION
     Route: 048
     Dates: start: 20180309, end: 20180420
  19. PEPCID [Concomitant]
     Active Substance: FAMOTIDINE
     Route: 048
  20. BRILINTA [Suspect]
     Active Substance: TICAGRELOR
     Indication: CORONARY ARTERIAL STENT INSERTION
     Dosage: 1 A DAY
     Route: 048

REACTIONS (17)
  - Pruritus [Unknown]
  - Anxiety [Recovered/Resolved]
  - Mood altered [Unknown]
  - Transaminases increased [Unknown]
  - Drug intolerance [Unknown]
  - Tremor [Unknown]
  - Rash [Recovered/Resolved]
  - Myalgia [Unknown]
  - Cough [Unknown]
  - Drug hypersensitivity [Unknown]
  - Anger [Unknown]
  - Mental disorder [Unknown]
  - Arthralgia [Unknown]
  - Myocardial infarction [Unknown]
  - Dizziness [Unknown]
  - Muscle spasms [Unknown]
  - Fatigue [Unknown]

NARRATIVE: CASE EVENT DATE: 201802
